FAERS Safety Report 16863603 (Version 2)
Quarter: 2019Q4

REPORT INFORMATION
  Report Type: Spontaneous
  Country: DE (occurrence: DE)
  Receive Date: 20190927
  Receipt Date: 20191107
  Transmission Date: 20200122
  Serious: Yes (Other)
  Sender: FDA-Public Use
  Company Number: DE-BAYER-2019-170871

PATIENT
  Age: 66 Year
  Sex: Male
  Weight: 107 kg

DRUGS (9)
  1. XOFIGO [Suspect]
     Active Substance: RADIUM RA-223 DICHLORIDE
     Indication: METASTASES TO BONE
     Dosage: DAILY DOSE 6.62 MBQ
     Dates: start: 20190523, end: 20190523
  2. XOFIGO [Suspect]
     Active Substance: RADIUM RA-223 DICHLORIDE
     Indication: PROSTATE CANCER STAGE IV
     Dosage: DAILY DOSE 6.12 MBQ
     Dates: start: 20190815, end: 20190815
  3. XOFIGO [Suspect]
     Active Substance: RADIUM RA-223 DICHLORIDE
     Indication: PROSTATE CANCER STAGE IV
     Dosage: DAILY DOSE 6.45 MBQ
     Dates: start: 20190425, end: 20190425
  4. JOD [Concomitant]
  5. TRENANTONE [Concomitant]
     Active Substance: LEUPROLIDE ACETATE
     Indication: ANTIANDROGEN THERAPY
     Dosage: UNK
     Dates: start: 20150729
  6. XOFIGO [Suspect]
     Active Substance: RADIUM RA-223 DICHLORIDE
     Indication: PROSTATE CANCER STAGE IV
     Dosage: DAILY DOSE 6.1 MBQ
     Dates: start: 20190718, end: 20190718
  7. STATIN [SIMVASTATIN] [Concomitant]
  8. PREDNISOLONE. [Concomitant]
     Active Substance: PREDNISOLONE
     Dosage: 10 MG
  9. XOFIGO [Suspect]
     Active Substance: RADIUM RA-223 DICHLORIDE
     Indication: PROSTATE CANCER STAGE IV
     Dosage: DAILY DOSE 6.23 MBQ
     Dates: start: 20190619, end: 20190619

REACTIONS (4)
  - Spinal compression fracture [Not Recovered/Not Resolved]
  - Cancer pain [Not Recovered/Not Resolved]
  - Thoracic vertebral fracture [Not Recovered/Not Resolved]
  - Haemangioma of bone [Not Recovered/Not Resolved]

NARRATIVE: CASE EVENT DATE: 2019
